FAERS Safety Report 8488806-3 (Version None)
Quarter: 2012Q3

REPORT INFORMATION
  Report Type: 
  Country: None (occurrence: None)
  Receive Date: 20120705
  Receipt Date: 20120625
  Transmission Date: 20120928
  Serious: Yes (Hospitalization, Other)
  Sender: FDA-Public Use
  Company Number: US-ASTRAZENECA-2011SE01707

PATIENT
  Age: 55 Year
  Sex: Female

DRUGS (3)
  1. NEXIUM [Suspect]
     Route: 048
  2. CRESTOR [Suspect]
     Route: 048
  3. TOPROL-XL [Suspect]
     Route: 048

REACTIONS (9)
  - PNEUMONIA [None]
  - GASTROOESOPHAGEAL REFLUX DISEASE [None]
  - APHAGIA [None]
  - MALAISE [None]
  - DRUG DOSE OMISSION [None]
  - DRUG INEFFECTIVE [None]
  - MYOCARDIAL INFARCTION [None]
  - BRONCHITIS [None]
  - TOOTH DISORDER [None]
